FAERS Safety Report 9794653 (Version 1)
Quarter: 2014Q1

REPORT INFORMATION
  Report Type: Spontaneous
  Country: US (occurrence: US)
  Receive Date: 20140102
  Receipt Date: 20140102
  Transmission Date: 20141002
  Serious: Yes (Hospitalization, Other)
  Sender: FDA-Public Use
  Company Number: US-GILEAD-2013-0091056

PATIENT
  Age: 29 Year
  Sex: Male

DRUGS (1)
  1. ATRIPLA [Suspect]
     Indication: HIV INFECTION
     Dosage: 1100 MG, UNK
     Route: 065
     Dates: end: 201312

REACTIONS (5)
  - Urinary tract infection [Unknown]
  - Staphylococcal bacteraemia [Unknown]
  - Orchitis [Unknown]
  - Abdominal pain [Unknown]
  - Abnormal dreams [Unknown]
